FAERS Safety Report 8104414 (Version 6)
Quarter: 2013Q4

REPORT INFORMATION
  Report Type: Spontaneous
  Country: US (occurrence: US)
  Receive Date: 20110824
  Receipt Date: 20131202
  Transmission Date: 20140711
  Serious: Yes (Death, Hospitalization)
  Sender: FDA-Public Use
  Company Number: US-GLAXOSMITHKLINE-B0741536A

PATIENT
  Age: 88 Year
  Sex: Female
  Weight: 95.3 kg

DRUGS (1)
  1. AVANDIA [Suspect]
     Indication: DIABETES MELLITUS
     Dosage: 4MG PER DAY
     Route: 048
     Dates: start: 20021125, end: 20060111

REACTIONS (5)
  - Cardiac failure congestive [Fatal]
  - Chronic obstructive pulmonary disease [Fatal]
  - Acute myocardial infarction [Unknown]
  - Cardiac pacemaker insertion [Unknown]
  - Acute coronary syndrome [Unknown]
